FAERS Safety Report 21944647 (Version 2)
Quarter: 2023Q1

REPORT INFORMATION
  Report Type: Report from Study
  Country: US (occurrence: US)
  Receive Date: 20230202
  Receipt Date: 20230216
  Transmission Date: 20230418
  Serious: Yes (Hospitalization)
  Sender: FDA-Public Use
  Company Number: US-SA-SAC20230201001121

PATIENT
  Age: 47 Year
  Sex: Female

DRUGS (1)
  1. DUPILUMAB [Suspect]
     Active Substance: DUPILUMAB
     Dosage: 300 MG, QOW
     Route: 058
     Dates: start: 20230125

REACTIONS (4)
  - Back pain [Unknown]
  - Arthralgia [Unknown]
  - Nerve compression [Unknown]
  - Joint dislocation [Unknown]

NARRATIVE: CASE EVENT DATE: 20230126
